APPROVED DRUG PRODUCT: NORETHINDRONE ACETATE AND ETHINYL ESTRADIOL
Active Ingredient: ETHINYL ESTRADIOL; NORETHINDRONE ACETATE
Strength: 0.005MG;1MG
Dosage Form/Route: TABLET;ORAL
Application: A076221 | Product #001 | TE Code: AB
Applicant: BARR LABORATORIES INC
Approved: Nov 6, 2009 | RLD: No | RS: Yes | Type: RX